FAERS Safety Report 7029735-1 (Version None)
Quarter: 2010Q4

REPORT INFORMATION
  Report Type: 
  Country: None (occurrence: None)
  Receive Date: 20101005
  Receipt Date: 20101005
  Transmission Date: 20110411
  Serious: Yes (Hospitalization, Other)
  Sender: FDA-Public Use
  Company Number: None

PATIENT
  Sex: Female
  Weight: 36.2878 kg

DRUGS (2)
  1. REMICADE [Suspect]
     Indication: JUVENILE ARTHRITIS
     Dosage: 6MG/KG EVERY 4 WEEKS IV DRIP
     Route: 041
     Dates: start: 20070829, end: 20101004
  2. REMICADE [Suspect]
     Indication: UVEITIS
     Dosage: 6MG/KG EVERY 4 WEEKS IV DRIP
     Route: 041
     Dates: start: 20070829, end: 20101004

REACTIONS (2)
  - DRUG HYPERSENSITIVITY [None]
  - INFUSION RELATED REACTION [None]
